FAERS Safety Report 18145344 (Version 2)
Quarter: 2020Q3

REPORT INFORMATION
  Report Type: Spontaneous
  Country: ES (occurrence: ES)
  Receive Date: 20200813
  Receipt Date: 20200827
  Transmission Date: 20201103
  Serious: Yes (Other)
  Sender: FDA-Public Use
  Company Number: ES-SUN PHARMACEUTICAL INDUSTRIES LTD-2020RR-257122

PATIENT
  Age: 56 Year
  Sex: Male

DRUGS (2)
  1. LYRICA [Suspect]
     Active Substance: PREGABALIN
     Indication: INTERVERTEBRAL DISC PROTRUSION
     Dosage: 9 YEARS DAILY SINCE 3 MONTHS BEFORE THE ONSET OF THE SKIN LESIONS
     Route: 065
  2. TRAMADOL/PARACETAMOL [Concomitant]
     Active Substance: ACETAMINOPHEN\TRAMADOL
     Indication: INTERVERTEBRAL DISC PROTRUSION
     Dosage: UNK
     Route: 065

REACTIONS (1)
  - Photosensitivity reaction [Recovered/Resolved]
